FAERS Safety Report 8027678-8 (Version None)
Quarter: 2012Q1

REPORT INFORMATION
  Report Type: 
  Country: None (occurrence: None)
  Receive Date: 20120104
  Receipt Date: 20111219
  Transmission Date: 20120608
  Serious: Yes (Hospitalization, Other)
  Sender: FDA-Public Use
  Company Number: UKP11000090

PATIENT
  Age: 77 Year
  Sex: Female

DRUGS (9)
  1. LACTULOSE [Concomitant]
  2. METRONIDAZOLE [Concomitant]
  3. CO-AMILOFRUSE (AMILORIDE HYDROCHLORIDE, FUROSEMIDE) [Concomitant]
  4. CO-AMOXICLAVE (AMOXICILLIN TRIHYDRATE, CLAVULANATE POTASSIUM) [Concomitant]
  5. RAMIPRIL [Concomitant]
  6. ADIZEM (DILTIAZEM HYDROCHLORIDE) [Concomitant]
  7. ACTONEL [Suspect]
     Dosage: 35 MG, 1/WEEK, ORAL
     Route: 048
     Dates: start: 20110923
  8. ASPIRIN [Concomitant]
  9. SIMVASTATIN [Concomitant]

REACTIONS (7)
  - FATIGUE [None]
  - BLOOD BILIRUBIN INCREASED [None]
  - DIVERTICULITIS [None]
  - ALANINE AMINOTRANSFERASE INCREASED [None]
  - ABDOMINAL DISCOMFORT [None]
  - ASTHENIA [None]
  - BLOOD ALKALINE PHOSPHATASE INCREASED [None]
